FAERS Safety Report 8599750-5 (Version None)
Quarter: 2012Q3

REPORT INFORMATION
  Report Type: 
  Country: None (occurrence: None)
  Receive Date: 20120816
  Receipt Date: 20120813
  Transmission Date: 20120928
  Serious: No
  Sender: FDA-Public Use
  Company Number: US-BAYER-2012-083429

PATIENT
  Sex: Female

DRUGS (1)
  1. ALEVE (CAPLET) [Suspect]
     Indication: ANALGESIC THERAPY
     Dosage: ATLEAST 7 A DAY
     Route: 048

REACTIONS (1)
  - GASTRIC DISORDER [None]
